FAERS Safety Report 10684726 (Version 4)
Quarter: 2015Q3

REPORT INFORMATION
  Report Type: Spontaneous
  Country: US (occurrence: US)
  Receive Date: 20141231
  Receipt Date: 20150716
  Transmission Date: 20151125
  Serious: Yes (Life-Threatening, Hospitalization, Other)
  Sender: FDA-Public Use
  Company Number: US-BAYER-2014-190552

PATIENT
  Age: 29 Year
  Sex: Female
  Weight: 113 kg

DRUGS (2)
  1. MIRENA [Suspect]
     Active Substance: LEVONORGESTREL
     Indication: CONTRACEPTION
     Dosage: 20 MCG/24HR, CONT
     Route: 015
     Dates: start: 20090224, end: 20130201
  2. ONDANSETRON [Concomitant]
     Active Substance: ONDANSETRON
     Indication: NAUSEA

REACTIONS (8)
  - Post procedural haemorrhage [Not Recovered/Not Resolved]
  - Procedural pain [None]
  - Abdominal pain [None]
  - Device issue [None]
  - Uterine perforation [None]
  - Injury [None]
  - General physical health deterioration [None]
  - Infection [None]

NARRATIVE: CASE EVENT DATE: 20130124
